FAERS Safety Report 23070421 (Version 1)
Quarter: 2023Q4

REPORT INFORMATION
  Report Type: Spontaneous
  Country: US (occurrence: US)
  Receive Date: 20231016
  Receipt Date: 20231016
  Transmission Date: 20240109
  Serious: Yes (Death, Other)
  Sender: FDA-Public Use
  Company Number: US-GILEAD-2023-0646257

PATIENT
  Sex: Female

DRUGS (1)
  1. VEKLURY [Suspect]
     Active Substance: REMDESIVIR
     Indication: COVID-19 pneumonia
     Dosage: UNK, QD
     Route: 065
     Dates: start: 20201123, end: 20201126

REACTIONS (8)
  - Acute respiratory failure [Fatal]
  - COVID-19 pneumonia [Fatal]
  - Septic shock [Fatal]
  - Renal failure [Fatal]
  - Seizure [Unknown]
  - Pain [Unknown]
  - Emotional distress [Unknown]
  - Unevaluable event [Unknown]

NARRATIVE: CASE EVENT DATE: 20201130
